FAERS Safety Report 4486367-7 (Version None)
Quarter: 2004Q4

REPORT INFORMATION
  Report Type: 
  Country: None (occurrence: None)
  Receive Date: 20041027
  Receipt Date: 20041019
  Transmission Date: 20050328
  Serious: Yes (Death, Life-Threatening)
  Sender: FDA-Public Use
  Company Number: 200413938FR

PATIENT
  Age: 73 Year
  Sex: Male

DRUGS (2)
  1. TAXOTERE [Suspect]
     Indication: PROSTATE CANCER METASTATIC
     Route: 042
     Dates: start: 20040630, end: 20040630
  2. ESTRACYT [Suspect]
     Dates: start: 20040630, end: 20040704

REACTIONS (8)
  - ANAEMIA [None]
  - BONE MARROW DEPRESSION [None]
  - DIARRHOEA [None]
  - DYSPNOEA [None]
  - GENERAL PHYSICAL HEALTH DETERIORATION [None]
  - PYREXIA [None]
  - STEVENS-JOHNSON SYNDROME [None]
  - THROMBOCYTOPENIA [None]
